FAERS Safety Report 5367188-X (Version None)
Quarter: 2007Q2

REPORT INFORMATION
  Report Type: 
  Country: None (occurrence: None)
  Receive Date: 20070622
  Receipt Date: 20070612
  Transmission Date: 20071010
  Serious: Yes (Death)
  Sender: FDA-Public Use
  Company Number: NL-ROCHE-501871

PATIENT
  Age: 74 Year
  Sex: Female

DRUGS (3)
  1. XELODA [Suspect]
     Route: 048
     Dates: start: 20070512
  2. OXALIPLATIN [Suspect]
     Dosage: FORM INFUSION POWDER. DOSAGE REGIMEN REPORTED AS 210
     Route: 042
     Dates: start: 20070502
  3. 1 CONCOMITANT DRUG [Concomitant]
     Dosage: DRUG NAME REPORTED AS BSA 1.63

REACTIONS (3)
  - DEATH [None]
  - MUCOSAL INFLAMMATION [None]
  - SEPSIS [None]
